FAERS Safety Report 14001911 (Version 1)
Quarter: 2017Q3

REPORT INFORMATION
  Report Type: Spontaneous
  Country: BR (occurrence: BR)
  Receive Date: 20170922
  Receipt Date: 20170922
  Transmission Date: 20171128
  Serious: Yes (Other)
  Sender: FDA-Public Use
  Company Number: PHHY2017BR131363

PATIENT
  Age: 29 Year
  Sex: Female
  Weight: 80 kg

DRUGS (6)
  1. CLOFAZIMINE [Suspect]
     Active Substance: CLOFAZIMINE
     Indication: LEPROSY
     Dosage: 1 DF, QD
     Route: 048
     Dates: start: 20170217
  2. FOLIC ACID. [Concomitant]
     Active Substance: FOLIC ACID
     Indication: PRODUCT USED FOR UNKNOWN INDICATION
     Dosage: 1 DF, QD
     Route: 065
  3. DAPSONE. [Suspect]
     Active Substance: DAPSONE
     Indication: LEPROSY
  4. OFLOXACIN. [Concomitant]
     Active Substance: OFLOXACIN
     Indication: PRODUCT USED FOR UNKNOWN INDICATION
     Route: 065
  5. TENAVIT [Concomitant]
     Indication: PRODUCT USED FOR UNKNOWN INDICATION
     Dosage: 1 DF, QD
     Route: 065
  6. RIFAMPICIN [Suspect]
     Active Substance: RIFAMPIN

REACTIONS (3)
  - Asthenia [Recovered/Resolved]
  - Haemolytic anaemia [Recovering/Resolving]
  - Tachycardia [Recovered/Resolved]

NARRATIVE: CASE EVENT DATE: 20170309
